FAERS Safety Report 7542579-7 (Version None)
Quarter: 2011Q2

REPORT INFORMATION
  Report Type: 
  Country: None (occurrence: None)
  Receive Date: 20110524
  Receipt Date: 20110414
  Transmission Date: 20111010
  Serious: No
  Sender: FDA-Public Use
  Company Number: 017535

PATIENT
  Sex: Male
  Weight: 68 kg

DRUGS (4)
  1. CIMZIA [Suspect]
     Indication: CROHN'S DISEASE
     Dosage: (400 MG 1X/4 WEEKS SUBCUTANEOUS), (400 MG 1X/4 WEEKS SUBCUTANEOUS), (400 MG 1X/MONTH SUBCUTANEOUS)
     Route: 058
     Dates: start: 20100125
  2. CIMZIA [Suspect]
  3. OXYCODONE HCL [Concomitant]
  4. CIMZIA [Suspect]

REACTIONS (5)
  - DIARRHOEA [None]
  - NAUSEA [None]
  - HAEMATOCHEZIA [None]
  - ABDOMINAL PAIN [None]
  - FATIGUE [None]
